FAERS Safety Report 7047072-6 (Version None)
Quarter: 2010Q4

REPORT INFORMATION
  Report Type: 
  Country: None (occurrence: None)
  Receive Date: 20101015
  Receipt Date: 20101006
  Transmission Date: 20110411
  Serious: Yes (Other)
  Sender: FDA-Public Use
  Company Number: CA-JNJFOC-20100405388

PATIENT
  Sex: Female
  Weight: 76 kg

DRUGS (3)
  1. REMICADE [Suspect]
     Indication: CROHN'S DISEASE
     Route: 042
  2. ASACOL [Concomitant]
     Dosage: 4 TABS 3 TIMES PER DAY
     Route: 048
  3. CONTRACEPTION [Concomitant]
     Route: 048

REACTIONS (3)
  - ANXIETY [None]
  - MIGRAINE WITH AURA [None]
  - VISUAL IMPAIRMENT [None]
